FAERS Safety Report 8567277 (Version 3)
Quarter: 2013Q1

REPORT INFORMATION
  Report Type: Spontaneous
  Country: US (occurrence: US)
  Receive Date: 20120517
  Receipt Date: 20130228
  Transmission Date: 20140127
  Serious: Yes (Hospitalization)
  Sender: FDA-Public Use
  Company Number: US-GLAXOSMITHKLINE-A0898689A

PATIENT
  Age: 70 Year
  Sex: Female
  Weight: 79.5 kg

DRUGS (6)
  1. AVANDIA [Suspect]
     Indication: TYPE 2 DIABETES MELLITUS
     Dosage: 2MG TWICE PER DAY
     Route: 048
     Dates: start: 2005, end: 200506
  2. AVANDAMET [Suspect]
     Indication: TYPE 2 DIABETES MELLITUS
     Dosage: 1TAB TWICE PER DAY
     Route: 048
     Dates: start: 200408, end: 2005
  3. METFORMIN [Concomitant]
  4. AMARYL [Concomitant]
  5. LIPITOR [Concomitant]
  6. AMARYL [Concomitant]

REACTIONS (2)
  - Acute coronary syndrome [Recovering/Resolving]
  - Acute pulmonary oedema [Unknown]
